FAERS Safety Report 5532065-8 (Version None)
Quarter: 2007Q4

REPORT INFORMATION
  Report Type: 
  Country: None (occurrence: None)
  Receive Date: 20071203
  Receipt Date: 20071122
  Transmission Date: 20080405
  Serious: Yes (Hospitalization)
  Sender: FDA-Public Use
  Company Number: B0496917A

PATIENT
  Age: 65 Year
  Sex: Female

DRUGS (10)
  1. AVANDIA [Suspect]
     Dosage: 4MG PER DAY
     Route: 048
     Dates: start: 20061201, end: 20071010
  2. EFFERALGAN CODEINE [Concomitant]
     Route: 065
  3. IRBESARTAN [Concomitant]
     Indication: HYPERTENSION
     Dosage: 75MG PER DAY
     Route: 048
  4. FENOFIBRATE [Concomitant]
     Dosage: 100MG PER DAY
     Route: 048
  5. METFORMIN HCL [Concomitant]
     Dosage: 1000MG PER DAY
     Route: 048
  6. GLYBURIDE [Concomitant]
     Dosage: 5MG PER DAY
     Route: 048
  7. BISOPROLOL FUMARATE AND HYDROCHLOROTHIAZIDE [Concomitant]
     Indication: HYPERTENSION
     Route: 048
  8. TRIVASTAL [Concomitant]
     Indication: PARKINSON'S DISEASE
     Route: 048
  9. LEVOTHYROX [Concomitant]
     Route: 048
  10. KARDEGIC [Concomitant]
     Route: 065

REACTIONS (11)
  - ACUTE PULMONARY OEDEMA [None]
  - BLOOD CREATINE PHOSPHOKINASE INCREASED [None]
  - BRAIN NATRIURETIC PEPTIDE INCREASED [None]
  - CARDIAC FAILURE [None]
  - CARDIOMEGALY [None]
  - DYSPNOEA [None]
  - DYSPNOEA EXERTIONAL [None]
  - GENERALISED OEDEMA [None]
  - LOCALISED OEDEMA [None]
  - LUNG DISORDER [None]
  - OEDEMA PERIPHERAL [None]
